FAERS Safety Report 8252577-6 (Version None)
Quarter: 2012Q2

REPORT INFORMATION
  Report Type: 
  Country: None (occurrence: None)
  Receive Date: 20120402
  Receipt Date: 20120315
  Transmission Date: 20120825
  Serious: Yes (Death, Hospitalization)
  Sender: FDA-Public Use
  Company Number: US-BAXTER-2012BH007736

PATIENT
  Sex: Male

DRUGS (5)
  1. GAMMAGARD LIQUID [Suspect]
     Route: 042
     Dates: start: 20120112, end: 20120112
  2. GAMMAGARD LIQUID [Suspect]
     Route: 042
     Dates: start: 20120125, end: 20120125
  3. GAMMAGARD LIQUID [Suspect]
     Route: 042
     Dates: start: 20120109, end: 20120109
  4. GAMMAGARD LIQUID [Suspect]
     Route: 042
     Dates: start: 20120123, end: 20120123
  5. GAMMAGARD LIQUID [Suspect]
     Route: 042
     Dates: start: 20120104, end: 20120104

REACTIONS (2)
  - DEATH [None]
  - PLATELET COUNT DECREASED [None]
